FAERS Safety Report 4682843-2 (Version None)
Quarter: 2005Q2

REPORT INFORMATION
  Report Type: 
  Country: None (occurrence: None)
  Receive Date: 20050602
  Receipt Date: 20050419
  Transmission Date: 20051028
  Serious: No
  Sender: FDA-Public Use
  Company Number: USA050496536

PATIENT
  Age: 47 Year
  Sex: Female

DRUGS (1)
  1. CYMBALTA [Suspect]
     Dosage: 60 MG
     Dates: start: 20050308, end: 20050330

REACTIONS (3)
  - FAECAL INCONTINENCE [None]
  - NIGHT SWEATS [None]
  - URINARY INCONTINENCE [None]
